FAERS Safety Report 5525668-8 (Version None)
Quarter: 2007Q4

REPORT INFORMATION
  Report Type: 
  Country: None (occurrence: None)
  Receive Date: 20071126
  Receipt Date: 20070828
  Transmission Date: 20080405
  Serious: Yes (Hospitalization)
  Sender: FDA-Public Use
  Company Number: US-ASTRAZENECA-2007UW03650

PATIENT
  Age: 373 Month
  Sex: Female
  Weight: 55.5 kg

DRUGS (9)
  1. SEROQUEL [Suspect]
     Indication: DEPRESSION
     Route: 048
     Dates: start: 20040101, end: 20060101
  2. SEROQUEL [Suspect]
     Indication: SLEEP DISORDER
     Route: 048
     Dates: start: 20040101, end: 20060101
  3. CYMBALTA [Concomitant]
     Route: 048
  4. CLONAZEPAM [Concomitant]
     Route: 048
  5. CLONAZEPAM [Concomitant]
     Route: 048
     Dates: start: 20030101
  6. HYDROXYCHLOROQUINE SULFATE [Concomitant]
  7. NEXIUM [Concomitant]
     Route: 048
  8. PROPOXYPHENE HYDROCHLORIDE [Concomitant]
  9. METOCLOPRAMIDE [Concomitant]

REACTIONS (4)
  - BLOOD GLUCOSE DECREASED [None]
  - CATHETERISATION CARDIAC [None]
  - CEREBROVASCULAR ACCIDENT [None]
  - DIABETES MELLITUS [None]
